FAERS Safety Report 8951715 (Version 1)
Quarter: 2012Q4

REPORT INFORMATION
  Report Type: 
  Country: FR (occurrence: FR)
  Receive Date: 20121204
  Receipt Date: 20121204
  Transmission Date: 20130627
  Serious: Yes (Hospitalization)
  Sender: FDA-Public Use
  Company Number: FR-B.I. PHARMACEUTICALS,INC./RIDGEFIELD-2012-FF-01799FF

PATIENT
  Age: 71 Year
  Sex: Female

DRUGS (6)
  1. PRADAXA [Suspect]
     Indication: ATRIAL FIBRILLATION
     Dosage: 220 mg
     Route: 048
  2. PRADAXA [Suspect]
     Dosage: 300 mg
     Route: 048
  3. ANGIOTENSIN II ANTAGONIST [Concomitant]
  4. FLECAINE [Concomitant]
  5. BETA-BLOCKING AGENT [Concomitant]
  6. ANTI-ASTHMATICS [Concomitant]
     Route: 055

REACTIONS (2)
  - Renal failure acute [Recovered/Resolved]
  - Anuria [Recovered/Resolved]
